FAERS Safety Report 8204948-1 (Version None)
Quarter: 2012Q1

REPORT INFORMATION
  Report Type: 
  Country: None (occurrence: None)
  Receive Date: 20120309
  Receipt Date: 20120307
  Transmission Date: 20120608
  Serious: Yes (Hospitalization, Other)
  Sender: FDA-Public Use
  Company Number: CL-394-2012

PATIENT
  Age: 39 Year
  Sex: Female

DRUGS (5)
  1. HALOPERIDOL [Suspect]
     Indication: PSYCHOTIC DISORDER
     Dosage: 3 TO 7.5MG DAILY
  2. MIRTAZAPINE [Concomitant]
  3. VENLAFAXINE [Concomitant]
  4. ARIPIPRAZOLE [Suspect]
     Indication: PSYCHOTIC DISORDER
     Dosage: UP TO 30MG/DAILY
  5. LORAZEPAM [Concomitant]

REACTIONS (7)
  - DEPRESSION [None]
  - ANXIETY [None]
  - HALLUCINATION, VISUAL [None]
  - DELUSION [None]
  - DRUG INTERACTION [None]
  - AGITATION [None]
  - SLEEP DISORDER [None]
